FAERS Safety Report 12314919 (Version 4)
Quarter: 2016Q2

REPORT INFORMATION
  Report Type: Report from Study
  Country: MX (occurrence: MX)
  Receive Date: 20160428
  Receipt Date: 20160530
  Transmission Date: 20160815
  Serious: Yes (Disabling, Other)
  Sender: FDA-Public Use
  Company Number: PHHY2016MX057190

PATIENT
  Sex: Male

DRUGS (8)
  1. MICCIL [Concomitant]
     Indication: DIURETIC THERAPY
     Dosage: 1 MG, QD
     Route: 065
  2. DIOVAN [Suspect]
     Active Substance: VALSARTAN
     Indication: HYPERTENSION
     Dosage: 2 DF, QD
     Route: 065
  3. MOTILIUM [Concomitant]
     Active Substance: DOMPERIDONE
     Indication: GASTROINTESTINAL DISORDER
     Dosage: 10 MG, QD IN THE MORNING (7 YEAR AGO)
     Route: 065
  4. ADECUR [Concomitant]
     Indication: HYPERTENSION
     Dosage: 2 MG, QD
     Route: 065
  5. COPLAVIX [Concomitant]
     Active Substance: ASPIRIN\CLOPIDOGREL BISULFATE
     Indication: PROPHYLAXIS
     Dosage: UNK
     Route: 065
  6. ATIVAN [Concomitant]
     Active Substance: LORAZEPAM
     Indication: SLEEP DISORDER
     Route: 065
  7. DITREI [Concomitant]
     Indication: HYPERTENSION
     Route: 065
  8. STUGERON [Concomitant]
     Active Substance: CINNARIZINE
     Indication: CEREBRAL DISORDER
     Dosage: 75 OT, QD
     Route: 065

REACTIONS (7)
  - Malaise [Unknown]
  - Dyspnoea exertional [Unknown]
  - Respiratory disorder [Unknown]
  - Abasia [Unknown]
  - Pneumonia [Recovering/Resolving]
  - Rash generalised [Unknown]
  - Herpes virus infection [Unknown]
